FAERS Safety Report 18920527 (Version 1)
Quarter: 2021Q1

REPORT INFORMATION
  Report Type: Spontaneous
  Country: US (occurrence: US)
  Receive Date: 20210222
  Receipt Date: 20210222
  Transmission Date: 20210420
  Serious: Yes (Other)
  Sender: FDA-Public Use
  Company Number: US-35507-2021-01907

PATIENT
  Age: 20 Year
  Sex: Male

DRUGS (5)
  1. BUPROPION. [Suspect]
     Active Substance: BUPROPION
     Indication: SEROTONIN SYNDROME
     Dosage: UNK
     Route: 065
  2. SERTRALINE [Suspect]
     Active Substance: SERTRALINE HYDROCHLORIDE
     Indication: SEROTONIN SYNDROME
     Dosage: UNK
     Route: 065
  3. AMITRIPTYLINE [Concomitant]
     Active Substance: AMITRIPTYLINE
     Indication: ANXIETY
     Dosage: 10 MILLIGRAM, QD
     Route: 065
  4. PERFENAZINE [Concomitant]
     Active Substance: PERPHENAZINE
     Indication: ANXIETY
     Dosage: UNK
     Route: 065
  5. MITRAGYNA SPECIOSA [Concomitant]
     Active Substance: HERBALS\MITRAGYNINE
     Indication: AFFECTIVE DISORDER
     Dosage: UNK
     Route: 065

REACTIONS (1)
  - Drug ineffective [Unknown]
